FAERS Safety Report 5727875-8 (Version None)
Quarter: 2008Q2

REPORT INFORMATION
  Report Type: 
  Country: None (occurrence: None)
  Receive Date: 20080429
  Receipt Date: 20071015
  Transmission Date: 20081010
  Serious: Yes (Other)
  Sender: FDA-Public Use
  Company Number: 019646

PATIENT
  Sex: Female

DRUGS (3)
  1. CENESTIN [Suspect]
     Dosage: ORAL
     Route: 048
     Dates: start: 19970101, end: 20041201
  2. PREMARIN [Suspect]
     Dosage: ORAL
     Route: 048
     Dates: start: 19970101, end: 20041201
  3. PREMPRO [Suspect]
     Dosage: ORAL
     Route: 048
     Dates: start: 19970101, end: 20041201

REACTIONS (1)
  - BREAST CANCER [None]
